FAERS Safety Report 5871426-4 (Version None)
Quarter: 2008Q3

REPORT INFORMATION
  Report Type: 
  Country: None (occurrence: None)
  Receive Date: 20080905
  Receipt Date: 20080828
  Transmission Date: 20090109
  Serious: Yes (Hospitalization)
  Sender: FDA-Public Use
  Company Number: PHHY2008JP12570

PATIENT
  Sex: Male
  Weight: 58 kg

DRUGS (1)
  1. LAMISIL [Suspect]
     Indication: ONYCHOMYCOSIS
     Dosage: 125 MG, QD
     Route: 048
     Dates: end: 20080511

REACTIONS (10)
  - BLOOD GLUCOSE INCREASED [None]
  - EOSINOPHIL COUNT INCREASED [None]
  - GALLBLADDER DISORDER [None]
  - HEPATIC FUNCTION ABNORMAL [None]
  - LYMPHOCYTE COUNT DECREASED [None]
  - LYMPHOCYTE STIMULATION TEST POSITIVE [None]
  - MAGNETIC RESONANCE CHOLANGIOPANCREATOGRAPHY [None]
  - MALAISE [None]
  - MONOCYTE COUNT INCREASED [None]
  - PYREXIA [None]
